FAERS Safety Report 19569787 (Version 1)
Quarter: 2021Q3

REPORT INFORMATION
  Report Type: Spontaneous
  Country: JM (occurrence: JM)
  Receive Date: 20210716
  Receipt Date: 20210716
  Transmission Date: 20211014
  Serious: Yes (Other)
  Sender: FDA-Public Use
  Company Number: JM-009507513-2107JAM004920

PATIENT
  Sex: Female

DRUGS (1)
  1. KEYTRUDA [Suspect]
     Active Substance: PEMBROLIZUMAB
     Indication: NON-SMALL CELL LUNG CANCER
     Dosage: 200 MG EVERY 2 WEEKS
     Route: 042

REACTIONS (5)
  - Hyperthyroidism [Unknown]
  - Inappropriate schedule of product administration [Unknown]
  - Intestinal obstruction [Unknown]
  - Herpes zoster [Unknown]
  - Rash [Unknown]
